FAERS Safety Report 14281593 (Version 2)
Quarter: 2018Q1

REPORT INFORMATION
  Report Type: Spontaneous
  Country: US (occurrence: US)
  Receive Date: 20171213
  Receipt Date: 20180118
  Transmission Date: 20180508
  Serious: No
  Sender: FDA-Public Use
  Company Number: US-PFIZER INC-2017531195

PATIENT
  Age: 10 Year
  Sex: Male

DRUGS (1)
  1. QUILLIVANT XR [Suspect]
     Active Substance: METHYLPHENIDATE HYDROCHLORIDE
     Indication: ATTENTION DEFICIT/HYPERACTIVITY DISORDER
     Dosage: 3 ML, 1X/DAY
     Route: 048
     Dates: start: 201703

REACTIONS (4)
  - Drug ineffective [Unknown]
  - Abnormal behaviour [Unknown]
  - Product quality issue [Unknown]
  - Poor quality drug administered [Unknown]
